FAERS Safety Report 6549421-1 (Version None)
Quarter: 2010Q1

REPORT INFORMATION
  Report Type: 
  Country: None (occurrence: None)
  Receive Date: 20100125
  Receipt Date: 20100113
  Transmission Date: 20100710
  Serious: Yes (Hospitalization)
  Sender: FDA-Public Use
  Company Number: US-ELI_LILLY_AND_COMPANY-US201001003059

PATIENT
  Age: 55 Year
  Sex: Male

DRUGS (3)
  1. ZYPREXA [Suspect]
     Indication: MANIA
     Dosage: 10 MG, UNK
     Route: 030
     Dates: start: 20091210, end: 20091210
  2. ZYPREXA [Suspect]
     Dosage: 10 MG, UNK
     Route: 030
     Dates: start: 20091210, end: 20091210
  3. ZYPREXA [Suspect]
     Dosage: 10 MG, UNK
     Route: 030
     Dates: start: 20091210, end: 20091210

REACTIONS (2)
  - HOSPITALISATION [None]
  - OFF LABEL USE [None]
